FAERS Safety Report 6981053 (Version 3)
Quarter: 2014Q1

REPORT INFORMATION
  Report Type: Spontaneous
  Country: US (occurrence: None)
  Receive Date: 20090227
  Receipt Date: 20140304
  Transmission Date: 20141002
  Serious: Yes (Hospitalization, Other)
  Sender: FDA-Public Use
  Company Number: RB-0931-2008

PATIENT
  Sex: Male

DRUGS (2)
  1. SUBOXONE [Suspect]
     Indication: DRUG DEPENDENCE
     Route: 064
     Dates: start: 200708, end: 200708
  2. SUBUTEX [Suspect]
     Indication: DRUG DEPENDENCE
     Dosage: 16 MG QD TRANSPLACENTAL
     Route: 064
     Dates: start: 20071005, end: 20080418

REACTIONS (3)
  - Maternal exposure during pregnancy [None]
  - Drug withdrawal syndrome neonatal [None]
  - Foetal exposure during pregnancy [None]
